FAERS Safety Report 11115417 (Version 1)
Quarter: 2015Q2

REPORT INFORMATION
  Report Type: Spontaneous
  Country: TR (occurrence: TR)
  Receive Date: 20150515
  Receipt Date: 20150515
  Transmission Date: 20150821
  Serious: Yes (Other)
  Sender: FDA-Public Use
  Company Number: TR-ELI_LILLY_AND_COMPANY-TR201505000917

PATIENT
  Age: 54 Year
  Sex: Female

DRUGS (1)
  1. HUMALOG [Suspect]
     Active Substance: INSULIN LISPRO
     Indication: TYPE 2 DIABETES MELLITUS
     Dosage: UNK UNK, TID
     Route: 065
     Dates: start: 2014, end: 201504

REACTIONS (4)
  - Scleroedema [Not Recovered/Not Resolved]
  - Muscular weakness [Unknown]
  - Brain mass [Unknown]
  - Gait disturbance [Not Recovered/Not Resolved]
